FAERS Safety Report 13355487 (Version 1)
Quarter: 2017Q1

REPORT INFORMATION
  Report Type: Spontaneous
  Country: US (occurrence: US)
  Receive Date: 20170321
  Receipt Date: 20170321
  Transmission Date: 20170429
  Serious: No
  Sender: FDA-Public Use
  Company Number: US-ASTRAZENECA-2017SE27331

PATIENT
  Age: 745 Month
  Sex: Female
  Weight: 48.1 kg

DRUGS (6)
  1. PULMICORT FLEXHALER [Suspect]
     Active Substance: BUDESONIDE
     Indication: EMPHYSEMA
     Dosage: FOUR INHALATIONS
     Route: 055
     Dates: start: 20170310, end: 20170310
  2. PULMICORT FLEXHALER [Suspect]
     Active Substance: BUDESONIDE
     Indication: EMPHYSEMA
     Dosage: 1 INHALATION TWICE A DAY
     Route: 055
     Dates: start: 201703
  3. THORN SPECIAL MULTIVITAMIN [Concomitant]
     Indication: ROUTINE HEALTH MAINTENANCE
     Route: 048
     Dates: start: 2011
  4. PROGESTERONE CREAM AND CRYSIN AROMASIN [Concomitant]
     Indication: BREAST CANCER
     Route: 062
     Dates: start: 2011
  5. FOLATE SODIUM [Concomitant]
     Active Substance: FOLATE SODIUM
     Indication: IMMUNISATION
     Route: 048
     Dates: start: 2011
  6. THYMUS EXTRACT [Concomitant]
     Indication: IMMUNISATION
     Route: 048
     Dates: start: 2011

REACTIONS (10)
  - Wrong technique in product usage process [Recovered/Resolved]
  - Intentional device misuse [Unknown]
  - Off label use [Not Recovered/Not Resolved]
  - Product use issue [Not Recovered/Not Resolved]
  - Circumstance or information capable of leading to medication error [Unknown]
  - Device use error [Unknown]
  - Device failure [Unknown]
  - Drug effect decreased [Unknown]
  - Fatigue [Unknown]
  - Extra dose administered [Recovered/Resolved]

NARRATIVE: CASE EVENT DATE: 201703
